FAERS Safety Report 8585760-0 (Version None)
Quarter: 2012Q2

REPORT INFORMATION
  Report Type: 
  Country: None (occurrence: None)
  Receive Date: 20120423
  Receipt Date: 20090827
  Transmission Date: 20120825
  Serious: Yes (Hospitalization)
  Sender: FDA-Public Use
  Company Number: PHEH2009US19060

PATIENT
  Age: 76 Year
  Sex: Male

DRUGS (1)
  1. EXJADE [Suspect]
     Dosage: UNK, ORAL 2000 MG, QD, ORAL
     Route: 048

REACTIONS (6)
  - PYREXIA [None]
  - RASH ERYTHEMATOUS [None]
  - EYE DISORDER [None]
  - HEARING IMPAIRED [None]
  - VASCULITIS [None]
  - OEDEMA PERIPHERAL [None]
